FAERS Safety Report 6312642-7 (Version None)
Quarter: 2009Q3

REPORT INFORMATION
  Report Type: 
  Country: None (occurrence: None)
  Receive Date: 20090814
  Receipt Date: 20090810
  Transmission Date: 20100115
  Serious: Yes (Death)
  Sender: FDA-Public Use
  Company Number: 1000008108

PATIENT
  Age: 78 Year
  Sex: Male

DRUGS (4)
  1. NAMENDA [Suspect]
  2. ARICEPT [Suspect]
  3. . [Concomitant]
  4. CYMBALTA [Concomitant]

REACTIONS (1)
  - COMPLETED SUICIDE [None]
